FAERS Safety Report 14860216 (Version 1)
Quarter: 2018Q2

REPORT INFORMATION
  Report Type: Spontaneous
  Country: IL (occurrence: IL)
  Receive Date: 20180508
  Receipt Date: 20180508
  Transmission Date: 20180711
  Serious: Yes (Life-Threatening, Other)
  Sender: FDA-Public Use
  Company Number: IL-JNJFOC-20180503344

PATIENT
  Age: 82 Year
  Sex: Male

DRUGS (1)
  1. IMBRUVICA [Suspect]
     Active Substance: IBRUTINIB
     Indication: CHRONIC LYMPHOCYTIC LEUKAEMIA
     Route: 048
     Dates: start: 201708

REACTIONS (5)
  - Myocardial infarction [Unknown]
  - Chronic lymphocytic leukaemia [Unknown]
  - Diarrhoea [Recovered/Resolved]
  - Cardiac fibrillation [Unknown]
  - Lung infection [Unknown]

NARRATIVE: CASE EVENT DATE: 201801
